FAERS Safety Report 5705054-8 (Version None)
Quarter: 2008Q2

REPORT INFORMATION
  Report Type: 
  Country: None (occurrence: None)
  Receive Date: 20080414
  Receipt Date: 20080404
  Transmission Date: 20081010
  Serious: Yes (Hospitalization)
  Sender: FDA-Public Use
  Company Number: JP-PFIZER INC-2008031805

PATIENT
  Sex: Female

DRUGS (5)
  1. CELECOX [Suspect]
     Indication: OSTEOARTHRITIS
     Dosage: DAILY DOSE:200MG
     Route: 048
     Dates: start: 20080323, end: 20080330
  2. FLUITRAN [Concomitant]
     Route: 048
  3. CYTOTEC [Concomitant]
     Route: 048
  4. RISEDRONATE SODIUM HYDRATE [Concomitant]
     Route: 048
  5. LORCAM [Concomitant]
     Route: 048

REACTIONS (3)
  - ERYTHEMA [None]
  - MUSCULAR WEAKNESS [None]
  - PYREXIA [None]
